FAERS Safety Report 10974226 (Version 1)
Quarter: 2015Q2

REPORT INFORMATION
  Report Type: Spontaneous
  Country: GB (occurrence: GB)
  Receive Date: 20150401
  Receipt Date: 20150401
  Transmission Date: 20150821
  Serious: Yes (Hospitalization)
  Sender: FDA-Public Use
  Company Number: GB-TEVA-550840ACC

PATIENT
  Age: 76 Year
  Sex: Female
  Weight: 107 kg

DRUGS (11)
  1. WARFARIN [Suspect]
     Active Substance: WARFARIN
  2. GALANTAMINE [Concomitant]
     Active Substance: GALANTAMINE
  3. NAVISPARE [Concomitant]
  4. PARACETAMOL [Concomitant]
     Active Substance: ACETAMINOPHEN
  5. SIMVASTATIN. [Concomitant]
     Active Substance: SIMVASTATIN
  6. DIGOXIN. [Concomitant]
     Active Substance: DIGOXIN
  7. ENALAPRIL [Concomitant]
     Active Substance: ENALAPRIL
  8. TRAVATAN [Concomitant]
     Active Substance: TRAVOPROST
  9. BRISTOL LABS FRUSEMIDE [Interacting]
     Active Substance: FUROSEMIDE
     Indication: OEDEMA
     Route: 048
     Dates: start: 20150121, end: 20150205
  10. LEVOTHYROXINE [Concomitant]
     Active Substance: LEVOTHYROXINE
  11. QUETIAPINE [Concomitant]
     Active Substance: QUETIAPINE

REACTIONS (5)
  - Pruritus generalised [Unknown]
  - Rash [Recovering/Resolving]
  - International normalised ratio increased [Unknown]
  - Facial pain [Unknown]
  - Drug interaction [Unknown]

NARRATIVE: CASE EVENT DATE: 20150123
